FAERS Safety Report 6891898-6 (Version None)
Quarter: 2010Q3

REPORT INFORMATION
  Report Type: 
  Country: None (occurrence: None)
  Receive Date: 20100731
  Receipt Date: 20071216
  Transmission Date: 20110219
  Serious: No
  Sender: FDA-Public Use
  Company Number: US-PFIZER INC-2007084678

PATIENT
  Sex: Male
  Weight: 93.1 kg

DRUGS (4)
  1. CAVERJECT [Suspect]
     Indication: ERECTILE DYSFUNCTION
     Dates: start: 20071005
  2. LOVASTATIN [Concomitant]
  3. DRUG, UNSPECIFIED [Concomitant]
  4. HYDROCORTISONE ACETATE [Concomitant]

REACTIONS (1)
  - MEDICAL DEVICE COMPLICATION [None]
